FAERS Safety Report 20561500 (Version 1)
Quarter: 2022Q1

REPORT INFORMATION
  Report Type: Spontaneous
  Country: CA (occurrence: CA)
  Receive Date: 20220307
  Receipt Date: 20220307
  Transmission Date: 20220423
  Serious: Yes (Hospitalization, Other)
  Sender: FDA-Public Use
  Company Number: CA-ALLERGAN-2207509US

PATIENT
  Sex: Male

DRUGS (5)
  1. BOTOX [Suspect]
     Active Substance: ONABOTULINUMTOXINA
     Indication: Salivary hypersecretion
     Dosage: 4 UNITS, SINGLE
  2. BOTOX [Suspect]
     Active Substance: ONABOTULINUMTOXINA
     Dosage: 3 UNITS, SINGLE
  3. BOTOX [Suspect]
     Active Substance: ONABOTULINUMTOXINA
     Dosage: 2 UNITS, SINGLE
  4. BOTOX [Suspect]
     Active Substance: ONABOTULINUMTOXINA
     Dosage: 3 UNITS, SINGLE
  5. NUSINERSEN [Concomitant]
     Active Substance: NUSINERSEN
     Indication: Spinal muscular atrophy
     Dosage: UNK

REACTIONS (8)
  - Klebsiella infection [Unknown]
  - Dyspnoea [Unknown]
  - Dysphagia [Recovered/Resolved]
  - Off label use [Unknown]
  - Muscular weakness [Recovering/Resolving]
  - Dysphonia [Unknown]
  - Dysarthria [Unknown]
  - Drug ineffective for unapproved indication [Unknown]
